FAERS Safety Report 10637235 (Version 1)
Quarter: 2014Q4

REPORT INFORMATION
  Report Type: Report from Study
  Country: US (occurrence: US)
  Receive Date: 20141208
  Receipt Date: 20141208
  Transmission Date: 20150529
  Serious: Yes (Hospitalization, Other)
  Sender: FDA-Public Use
  Company Number: US-JNJFOC-20141201828

PATIENT
  Age: 20 Year
  Sex: Female

DRUGS (2)
  1. INVEGA SUSTENNA [Suspect]
     Active Substance: PALIPERIDONE PALMITATE
     Indication: SCHIZOPHRENIA
     Route: 030
  2. COGENTIN [Concomitant]
     Active Substance: BENZTROPINE MESYLATE
     Indication: PRODUCT USED FOR UNKNOWN INDICATION
     Dosage: 1/2 TABLET TWICE A DAY
     Route: 065

REACTIONS (17)
  - Anorexia nervosa [Unknown]
  - Delusion [Unknown]
  - Suicidal ideation [Unknown]
  - Disturbance in social behaviour [Unknown]
  - Dissociation [Unknown]
  - Migraine [Unknown]
  - Loss of consciousness [Unknown]
  - Homicidal ideation [Unknown]
  - Violence-related symptom [Unknown]
  - Aphasia [Unknown]
  - Gait disturbance [Unknown]
  - Dermatitis allergic [Unknown]
  - Hallucination [Unknown]
  - Fluid retention [Unknown]
  - Flat affect [Unknown]
  - Hospitalisation [Unknown]
  - Seizure [Unknown]

NARRATIVE: CASE EVENT DATE: 20141124
